FAERS Safety Report 22031163 (Version 1)
Quarter: 2023Q1

REPORT INFORMATION
  Report Type: Spontaneous
  Country: US (occurrence: US)
  Receive Date: 20230223
  Receipt Date: 20230223
  Transmission Date: 20230418
  Serious: Yes (Other)
  Sender: FDA-Public Use
  Company Number: US-SUN PHARMACEUTICAL INDUSTRIES LTD-2023R1-380415

PATIENT
  Age: 62 Year
  Sex: Male

DRUGS (1)
  1. ROSUVASTATIN [Suspect]
     Active Substance: ROSUVASTATIN
     Indication: Product used for unknown indication
     Dosage: 40 MILLIGRAM, DAILY
     Route: 065

REACTIONS (5)
  - Myopathy [Recovering/Resolving]
  - Blood urine present [Recovering/Resolving]
  - Blood creatine phosphokinase increased [Recovering/Resolving]
  - Urinary tract infection [Recovering/Resolving]
  - Liver function test increased [Recovering/Resolving]
